FAERS Safety Report 20494159 (Version 1)
Quarter: 2022Q1

REPORT INFORMATION
  Report Type: Spontaneous
  Country: CN (occurrence: CN)
  Receive Date: 20220221
  Receipt Date: 20220221
  Transmission Date: 20220423
  Serious: Yes (Hospitalization, Other)
  Sender: FDA-Public Use
  Company Number: CN-SA-SAC20220218000333

PATIENT
  Age: 59 Year
  Sex: Female
  Weight: 43 kg

DRUGS (8)
  1. ELOXATIN [Suspect]
     Active Substance: OXALIPLATIN
     Indication: Chemotherapy
     Dosage: 135 MG, 1X
     Route: 041
     Dates: start: 20211229, end: 20211229
  2. ELOXATIN [Suspect]
     Active Substance: OXALIPLATIN
     Indication: Rectal cancer
  3. ELOXATIN [Suspect]
     Active Substance: OXALIPLATIN
     Indication: Asthma
  4. ELOXATIN [Suspect]
     Active Substance: OXALIPLATIN
     Indication: Neoplasm
  5. DEXTROSE [Concomitant]
     Active Substance: DEXTROSE
     Indication: Chemotherapy
     Dosage: ONCE (1X)
     Route: 041
     Dates: start: 20211229, end: 20211229
  6. DEXTROSE [Concomitant]
     Active Substance: DEXTROSE
     Indication: Neoplasm
  7. DEXTROSE [Concomitant]
     Active Substance: DEXTROSE
     Indication: Rectal cancer
  8. DEXTROSE [Concomitant]
     Active Substance: DEXTROSE
     Indication: Asthma

REACTIONS (1)
  - Thrombocytopenia [Recovering/Resolving]

NARRATIVE: CASE EVENT DATE: 20220114
